FAERS Safety Report 12972034 (Version 1)
Quarter: 2016Q4

REPORT INFORMATION
  Report Type: Spontaneous
  Country: US (occurrence: US)
  Receive Date: 20161124
  Receipt Date: 20161124
  Transmission Date: 20170207
  Serious: No
  Sender: FDA-Public Use
  Company Number: US-HORIZON-ACT-0275-2016

PATIENT
  Sex: Male

DRUGS (1)
  1. ACTIMMUNE [Suspect]
     Active Substance: INTERFERON GAMMA-1B
     Indication: CHRONIC GRANULOMATOUS DISEASE
     Dates: start: 201507

REACTIONS (3)
  - Red blood cell sedimentation rate increased [Recovering/Resolving]
  - White blood cell count increased [Recovering/Resolving]
  - Movement disorder [Recovering/Resolving]
